FAERS Safety Report 9347138 (Version 1)
Quarter: 2013Q2

REPORT INFORMATION
  Report Type: Report from Study
  Country: GB (occurrence: GB)
  Receive Date: 20130613
  Receipt Date: 20130613
  Transmission Date: 20140414
  Serious: Yes (Hospitalization)
  Sender: FDA-Public Use
  Company Number: GB-ASTRAZENECA-2013SE40786

PATIENT
  Age: 20989 Day
  Sex: Male
  Weight: 80.4 kg

DRUGS (10)
  1. ZD6474 [Suspect]
     Indication: PANCREATIC CARCINOMA
     Route: 048
     Dates: start: 20120801
  2. ZD6474 [Suspect]
     Indication: PANCREATIC CARCINOMA
     Route: 048
     Dates: start: 20121114, end: 20130108
  3. GEMCITABINE [Suspect]
     Indication: PANCREATIC CARCINOMA
     Route: 042
     Dates: start: 20120801
  4. GEMCITABINE [Suspect]
     Indication: PANCREATIC CARCINOMA
     Route: 042
     Dates: start: 20121114, end: 20130108
  5. OMEPRAZOLE [Concomitant]
     Indication: REFLUX GASTRITIS
     Route: 048
     Dates: start: 20120822
  6. AMLODIPIN [Concomitant]
     Indication: HYPERTENSION
     Route: 048
     Dates: start: 20120822
  7. CLINDOMYCIN [Concomitant]
     Indication: RASH
     Dates: start: 20120822
  8. GLICLAZIDE [Concomitant]
     Indication: TYPE 2 DIABETES MELLITUS
     Route: 048
     Dates: start: 19970615
  9. CREON [Concomitant]
     Indication: ENZYME SUPPLEMENTATION
     Route: 048
     Dates: start: 20120829
  10. MESALAZINE [Concomitant]
     Indication: CROHN^S DISEASE
     Route: 048
     Dates: start: 19970615

REACTIONS (1)
  - Hepatic infection [Recovered/Resolved]
